FAERS Safety Report 7226400-2 (Version None)
Quarter: 2011Q1

REPORT INFORMATION
  Report Type: 
  Country: None (occurrence: None)
  Receive Date: 20110110
  Receipt Date: 20110110
  Transmission Date: 20110831
  Serious: No
  Sender: FDA-Public Use
  Company Number: None

PATIENT
  Age: 79 Year
  Sex: Female
  Weight: 81.6475 kg

DRUGS (2)
  1. NITROFURANTOIN 100 MG CAPS TEVA USA [Suspect]
     Indication: FAECES DISCOLOURED
     Dosage: CAPS TWICE DAILY PO
     Route: 048
     Dates: start: 20101228, end: 20101231
  2. NITROFURANTOIN 100 MG CAPS TEVA USA [Suspect]
     Indication: BLOOD URINE PRESENT
     Dosage: CAPS TWICE DAILY PO
     Route: 048
     Dates: start: 20101228, end: 20101231

REACTIONS (4)
  - FAECES DISCOLOURED [None]
  - BLOOD URINE PRESENT [None]
  - DIARRHOEA [None]
  - ABNORMAL FAECES [None]
